FAERS Safety Report 16686917 (Version 3)
Quarter: 2020Q4

REPORT INFORMATION
  Report Type: Report from Study
  Country: US (occurrence: US)
  Receive Date: 20190809
  Receipt Date: 20201220
  Transmission Date: 20210113
  Serious: Yes (Hospitalization, Disabling, Other)
  Sender: FDA-Public Use
  Company Number: US-SA-2017SA027344

PATIENT

DRUGS (4)
  1. DAPSONE. [Concomitant]
     Active Substance: DAPSONE
     Dosage: UNK
     Route: 065
     Dates: start: 201905
  2. ALEMTUZUMAB [Suspect]
     Active Substance: ALEMTUZUMAB
     Dosage: 12 MG, QD
     Route: 041
     Dates: start: 20151217, end: 20151220
  3. ALEMTUZUMAB [Suspect]
     Active Substance: ALEMTUZUMAB
     Indication: MULTIPLE SCLEROSIS
     Dosage: 12 MG,QD
     Route: 041
     Dates: start: 20170130, end: 20170201
  4. ALEMTUZUMAB [Suspect]
     Active Substance: ALEMTUZUMAB
     Dosage: 12 MG, QD
     Route: 041
     Dates: start: 20151215, end: 20151215

REACTIONS (11)
  - Urinary tract infection [Not Recovered/Not Resolved]
  - Drug monitoring procedure not performed [Unknown]
  - Disability [Recovering/Resolving]
  - Body temperature decreased [Unknown]
  - Dyspnoea [Recovering/Resolving]
  - Multiple sclerosis relapse [Unknown]
  - Intra-aortic balloon placement [Not Recovered/Not Resolved]
  - Laboratory test abnormal [Unknown]
  - Neutropenia [Not Recovered/Not Resolved]
  - Fungal infection [Not Recovered/Not Resolved]
  - Immune system disorder [Not Recovered/Not Resolved]

NARRATIVE: CASE EVENT DATE: 2017
